FAERS Safety Report 9394018 (Version 1)
Quarter: 2013Q3

REPORT INFORMATION
  Report Type: Spontaneous
  Country: US (occurrence: US)
  Receive Date: 20130710
  Receipt Date: 20130710
  Transmission Date: 20140515
  Serious: Yes (Hospitalization, Other)
  Sender: FDA-Public Use
  Company Number: US-009507513-1107USA02571

PATIENT
  Sex: Female
  Weight: 74.84 kg

DRUGS (5)
  1. FOSAMAX [Suspect]
     Indication: OSTEOPOROSIS PROPHYLAXIS
     Dosage: 70 MG, QW
     Route: 048
     Dates: start: 200006, end: 20080526
  2. FOSAMAX [Suspect]
     Indication: OSTEOPENIA
  3. FOSAMAX [Suspect]
     Indication: OSTEOPOROSIS
     Dosage: 70 MG, QW
     Route: 048
     Dates: start: 20080527, end: 20090813
  4. FOSAMAX [Suspect]
     Indication: OSTEOPENIA
  5. FOSAMAX [Suspect]
     Indication: OSTEOPOROSIS
     Dosage: 70 MG, UNK
     Route: 048
     Dates: start: 20080527, end: 20090813

REACTIONS (41)
  - Open reduction of fracture [Recovered/Resolved]
  - Femur fracture [Recovered/Resolved]
  - Open reduction of fracture [Unknown]
  - Haemoglobin decreased [Unknown]
  - Knee arthroplasty [Unknown]
  - Fall [Unknown]
  - Femur fracture [Unknown]
  - Arthropathy [Unknown]
  - Hip fracture [Unknown]
  - Osteoarthritis [Unknown]
  - Hypotension [Unknown]
  - Hypoxia [Unknown]
  - Anaemia postoperative [Unknown]
  - Haemoglobin decreased [Unknown]
  - Femur fracture [Unknown]
  - Fall [Unknown]
  - Low turnover osteopathy [Unknown]
  - Pain [Not Recovered/Not Resolved]
  - Subcutaneous haematoma [Unknown]
  - Varicose vein [Unknown]
  - Osteoarthritis [Unknown]
  - Osteopetrosis [Unknown]
  - Polyneuropathy [Unknown]
  - Ecchymosis [Unknown]
  - Spondylolisthesis [Unknown]
  - Intervertebral disc degeneration [Unknown]
  - Insomnia [Unknown]
  - Crying [Unknown]
  - Herpes zoster [Recovering/Resolving]
  - Sleep apnoea syndrome [Unknown]
  - Muscular weakness [Not Recovered/Not Resolved]
  - Deep vein thrombosis [Unknown]
  - Osteoarthritis [Unknown]
  - Osteitis [Unknown]
  - Pubis fracture [Unknown]
  - Bone pain [Recovered/Resolved]
  - Pain in extremity [Not Recovered/Not Resolved]
  - Pain in extremity [Not Recovered/Not Resolved]
  - Pain in extremity [Unknown]
  - Rash [Recovering/Resolving]
  - Muscle spasms [Unknown]
